FAERS Safety Report 22539953 (Version 1)
Quarter: 2023Q2

REPORT INFORMATION
  Report Type: Spontaneous
  Country: US (occurrence: US)
  Receive Date: 20230609
  Receipt Date: 20230609
  Transmission Date: 20230722
  Serious: Yes (Death, Life-Threatening, Hospitalization, Other)
  Sender: FDA-Public Use
  Company Number: US-drreddys-SPO/USA/23/0166344

PATIENT
  Age: 45 Year
  Sex: Female

DRUGS (1)
  1. DIVALPROEX SODIUM [Suspect]
     Active Substance: DIVALPROEX SODIUM
     Indication: Trigeminal neuralgia

REACTIONS (11)
  - Septic shock [Fatal]
  - Acute kidney injury [Fatal]
  - Hepatic encephalopathy [Fatal]
  - Drug-induced liver injury [Fatal]
  - Acute respiratory failure [Fatal]
  - Hepatocellular injury [Fatal]
  - Spontaneous bacterial peritonitis [Fatal]
  - Anaemia macrocytic [Fatal]
  - Drug reaction with eosinophilia and systemic symptoms [Fatal]
  - Acute hepatic failure [Fatal]
  - Product use in unapproved indication [Unknown]
